FAERS Safety Report 5373210-7 (Version None)
Quarter: 2007Q2

REPORT INFORMATION
  Report Type: 
  Country: None (occurrence: None)
  Receive Date: 20070628
  Receipt Date: 20070622
  Transmission Date: 20071010
  Serious: Yes (Hospitalization)
  Sender: FDA-Public Use
  Company Number: HQWYE687119JUN07

PATIENT
  Age: 75 Year

DRUGS (1)
  1. PANTOPRAZOLE SODIUM [Suspect]
     Dosage: DOSE FORM
     Route: 048

REACTIONS (2)
  - BLOOD IRON DECREASED [None]
  - HAEMORRHAGE [None]
